FAERS Safety Report 5574232-3 (Version None)
Quarter: 2007Q4

REPORT INFORMATION
  Report Type: 
  Country: None (occurrence: None)
  Receive Date: 20071227
  Receipt Date: 20071221
  Transmission Date: 20080405
  Serious: Yes (Disabling)
  Sender: FDA-Public Use
  Company Number: JP-SP-2007-03548

PATIENT
  Age: 71 Year
  Sex: Female

DRUGS (2)
  1. IMMUCYST [Suspect]
     Indication: CARCINOMA IN SITU OF BLADDER
     Route: 043
     Dates: start: 20070511
  2. TEGAFUR URACIL [Concomitant]
     Dates: start: 20070305

REACTIONS (3)
  - CONTRACTED BLADDER [None]
  - HYDRONEPHROSIS [None]
  - POLLAKIURIA [None]
